FAERS Safety Report 5202208-4 (Version None)
Quarter: 2006Q4

REPORT INFORMATION
  Report Type: 
  Country: None (occurrence: None)
  Receive Date: 20061010
  Receipt Date: 20060418
  Transmission Date: 20070319
  Serious: Yes (Hospitalization)
  Sender: FDA-Public Use
  Company Number: 2006P1000279

PATIENT
  Age: 67 Year
  Sex: Male
  Weight: 94 kg

DRUGS (8)
  1. RETEPLASE (RETEPLASE) [Suspect]
     Indication: ACUTE MYOCARDIAL INFARCTION
     Dosage: IV
     Route: 042
     Dates: start: 20050825
  2. ABCIXIMAB (ABCIXIMAB) [Suspect]
     Dosage: IV
     Route: 042
     Dates: start: 20050825, end: 20050825
  3. ASPIRIN [Concomitant]
  4. METOPROLOL SUCCINATE [Concomitant]
  5. ENALAPRIL MALEATE [Concomitant]
  6. SIMVASTATIN [Concomitant]
  7. AMLODIPINE [Concomitant]
  8. INDAPAMIDE [Concomitant]

REACTIONS (1)
  - VENTRICULAR TACHYCARDIA [None]
